FAERS Safety Report 5099026-7 (Version None)
Quarter: 2006Q3

REPORT INFORMATION
  Report Type: 
  Country: None (occurrence: None)
  Receive Date: 20060907
  Receipt Date: 20060828
  Transmission Date: 20061208
  Serious: Yes (Other)
  Sender: FDA-Public Use
  Company Number: CH-ABBOTT-06P-151-0342388-00

PATIENT
  Age: 56 Year
  Sex: Male

DRUGS (6)
  1. DEPAKENE [Suspect]
     Indication: GRAND MAL CONVULSION
     Route: 048
     Dates: start: 19900101
  2. QUETIAPINE [Interacting]
     Indication: ACUTE PSYCHOSIS
     Route: 048
     Dates: start: 20060713, end: 20060714
  3. QUETIAPINE [Interacting]
     Route: 048
     Dates: start: 20060703, end: 20060713
  4. QUETIAPINE [Interacting]
     Dates: start: 20060714
  5. ARIPIPRAZOLE [Concomitant]
     Indication: SCHIZOPHRENIA
     Route: 048
     Dates: start: 20060714
  6. CLOTIAPINE [Concomitant]
     Indication: SCHIZOPHRENIA
     Route: 048
     Dates: start: 20060503

REACTIONS (3)
  - DRUG INTERACTION [None]
  - FEELING ABNORMAL [None]
  - ORTHOSTATIC HYPERTENSION [None]
